FAERS Safety Report 7483978-1 (Version None)
Quarter: 2011Q1

REPORT INFORMATION
  Report Type: 
  Country: None (occurrence: None)
  Receive Date: 20110309
  Receipt Date: 20110124
  Transmission Date: 20110831
  Serious: No
  Sender: FDA-Public Use
  Company Number: 2011SP003671

PATIENT
  Age: 21 Year
  Sex: Male

DRUGS (2)
  1. SAPHRIS [Suspect]
     Indication: BIPOLAR DISORDER
     Dosage: SL
     Route: 060
     Dates: start: 20110103
  2. ZYPREXA [Concomitant]

REACTIONS (1)
  - HAIR COLOUR CHANGES [None]
